FAERS Safety Report 5986604-3 (Version None)
Quarter: 2008Q4

REPORT INFORMATION
  Report Type: 
  Country: None (occurrence: None)
  Receive Date: 20081209
  Receipt Date: 20081203
  Transmission Date: 20090506
  Serious: Yes (Hospitalization, Disabling)
  Sender: FDA-Public Use
  Company Number: JP-AVENTIS-200813529JP

PATIENT
  Age: 82 Year
  Sex: Female

DRUGS (3)
  1. DAONIL [Suspect]
     Indication: TYPE 2 DIABETES MELLITUS
     Route: 048
  2. DAONIL [Suspect]
     Route: 048
  3. VOGLIBOSE [Concomitant]
     Route: 048

REACTIONS (1)
  - HYPOGLYCAEMIC ENCEPHALOPATHY [None]
